FAERS Safety Report 14075416 (Version 2)
Quarter: 2017Q4

REPORT INFORMATION
  Report Type: Spontaneous
  Country: NL (occurrence: NL)
  Receive Date: 20171010
  Receipt Date: 20171119
  Transmission Date: 20180321
  Serious: Yes (Death, Other)
  Sender: FDA-Public Use
  Company Number: NL-TERSERA THERAPEUTICS, LLC-2029538

PATIENT
  Age: 75 Year
  Sex: Male

DRUGS (1)
  1. ZOLADEX [Suspect]
     Active Substance: GOSERELIN ACETATE
     Indication: PROSTATE CANCER
     Route: 058
     Dates: start: 20151221

REACTIONS (2)
  - Malignant neoplasm progression [Not Recovered/Not Resolved]
  - Prostate cancer metastatic [Fatal]

NARRATIVE: CASE EVENT DATE: 20160316
